FAERS Safety Report 5640862-3 (Version None)
Quarter: 2008Q1

REPORT INFORMATION
  Report Type: 
  Country: None (occurrence: None)
  Receive Date: 20080225
  Receipt Date: 20080214
  Transmission Date: 20080703
  Serious: Yes (Other)
  Sender: FDA-Public Use
  Company Number: A0709969A

PATIENT
  Age: 18 Month
  Sex: Male

DRUGS (1)
  1. FLOVENT DISKUS 100 [Suspect]
     Indication: PNEUMONIA VIRAL
     Dosage: 2 PUFF(S) / TWICE PER DAY / INHALED
     Route: 055
     Dates: start: 20070101

REACTIONS (10)
  - AGGRESSION [None]
  - EAR INFECTION [None]
  - HAND-FOOT-AND-MOUTH DISEASE [None]
  - MALAISE [None]
  - MIDDLE EAR EFFUSION [None]
  - NASOPHARYNGITIS [None]
  - PERSONALITY CHANGE [None]
  - VIRAL DIARRHOEA [None]
  - VIRAL INFECTION [None]
  - VOMITING [None]
